FAERS Safety Report 15082754 (Version 1)
Quarter: 2018Q2

REPORT INFORMATION
  Report Type: Spontaneous
  Country: US (occurrence: US)
  Receive Date: 20180628
  Receipt Date: 20180628
  Transmission Date: 20180711
  Serious: No
  Sender: FDA-Public Use
  Company Number: US-ELI_LILLY_AND_COMPANY-US201806013332

PATIENT
  Age: 42 Year
  Sex: Male

DRUGS (1)
  1. TALTZ [Suspect]
     Active Substance: IXEKIZUMAB
     Indication: PSORIASIS
     Dosage: 80 UNK, UNKNOWN
     Route: 058
     Dates: start: 201804

REACTIONS (6)
  - Injection site pain [Unknown]
  - Injection site swelling [Not Recovered/Not Resolved]
  - Injection site reaction [Unknown]
  - Injection site erythema [Not Recovered/Not Resolved]
  - Injection site bruising [Unknown]
  - Injection site warmth [Not Recovered/Not Resolved]

NARRATIVE: CASE EVENT DATE: 201804
